FAERS Safety Report 7760191-1 (Version None)
Quarter: 2011Q3

REPORT INFORMATION
  Report Type: 
  Country: None (occurrence: None)
  Receive Date: 20110919
  Receipt Date: 20110913
  Transmission Date: 20111222
  Serious: Yes (Hospitalization)
  Sender: FDA-Public Use
  Company Number: US-GLAXOSMITHKLINE-A0808180A

PATIENT
  Age: 74 Year
  Sex: Female
  Weight: 90.9 kg

DRUGS (1)
  1. AVANDIA [Suspect]
     Indication: TYPE 2 DIABETES MELLITUS
     Dosage: 8MG PER DAY
     Dates: start: 20020701, end: 20070612

REACTIONS (6)
  - CARDIAC FAILURE CONGESTIVE [None]
  - ARTERIOSCLEROSIS [None]
  - HYPERLIPIDAEMIA [None]
  - TRANSIENT ISCHAEMIC ATTACK [None]
  - ATRIAL FIBRILLATION [None]
  - CEREBROVASCULAR ACCIDENT [None]
